FAERS Safety Report 6252630-2 (Version None)
Quarter: 2009Q2

REPORT INFORMATION
  Report Type: 
  Country: None (occurrence: None)
  Receive Date: 20090629
  Receipt Date: 20090629
  Transmission Date: 20091009
  Serious: Yes (Other)
  Sender: FDA-Public Use
  Company Number: None

PATIENT
  Age: 54 Year
  Sex: Female
  Weight: 77.1115 kg

DRUGS (1)
  1. AMBIEN [Suspect]
     Indication: INSOMNIA
     Dosage: 10 MG 1 AT BEDTIME PO
     Route: 048
     Dates: start: 20090517, end: 20090620

REACTIONS (6)
  - ANXIETY [None]
  - CYSTITIS [None]
  - INFLUENZA [None]
  - NAUSEA [None]
  - SINUSITIS [None]
  - URINARY RETENTION [None]
